FAERS Safety Report 10191046 (Version 1)
Quarter: 2014Q2

REPORT INFORMATION
  Report Type: Spontaneous
  Country: US (occurrence: None)
  Receive Date: 20140521
  Receipt Date: 20140521
  Transmission Date: 20141212
  Serious: Yes (Hospitalization)
  Sender: FDA-Public Use
  Company Number: None

PATIENT
  Age: 62 Year
  Sex: Male
  Weight: 81.8 kg

DRUGS (5)
  1. LISINOPRIL [Suspect]
     Indication: HYPERTENSION
     Dosage: TAKE ONE TABLET BY MOUTH EVERY DAY FOR BLOOD PRESSURE, HEART
     Route: 048
     Dates: start: 20111130, end: 20140220
  2. LISINOPRIL [Suspect]
     Dosage: TAKE ONE TABLET BY MOUTH EVERY DAY FOR BLOOD PRESSURE, HEART
     Route: 048
     Dates: start: 20111130, end: 20140220
  3. EPINEPHRINE [Concomitant]
  4. METHYLPREDNISOLONE [Concomitant]
  5. DIPHENHYDRAMINE [Concomitant]

REACTIONS (3)
  - Circumoral oedema [None]
  - Swollen tongue [None]
  - Angioedema [None]
